FAERS Safety Report 14776093 (Version 1)
Quarter: 2018Q2

REPORT INFORMATION
  Report Type: Report from Study
  Country: JP (occurrence: JP)
  Receive Date: 20180418
  Receipt Date: 20180418
  Transmission Date: 20180711
  Serious: Yes (Death, Hospitalization)
  Sender: FDA-Public Use
  Company Number: JP-JNJFOC-20180418218

PATIENT
  Age: 80 Year
  Sex: Male
  Weight: 85.6 kg

DRUGS (23)
  1. CELECOXIB. [Concomitant]
     Active Substance: CELECOXIB
     Indication: BACK PAIN
     Route: 048
     Dates: start: 20151208
  2. OXYCODONE HYDROCHLORIDE. [Concomitant]
     Active Substance: OXYCODONE HYDROCHLORIDE
     Indication: BACK PAIN
     Route: 048
     Dates: start: 20160120
  3. SENNA [Concomitant]
     Active Substance: SENNA LEAF\SENNOSIDES\SENNOSIDES A AND B
     Indication: CONSTIPATION
     Route: 048
     Dates: start: 20160120
  4. ABIRATERONE ACETATE. [Suspect]
     Active Substance: ABIRATERONE ACETATE
     Indication: HORMONE-REFRACTORY PROSTATE CANCER
     Route: 048
     Dates: start: 20150713, end: 20161229
  5. ABIRATERONE ACETATE. [Suspect]
     Active Substance: ABIRATERONE ACETATE
     Indication: METASTASES TO BONE
     Route: 048
     Dates: start: 20150713, end: 20161229
  6. RADIUM RA 223 DICHLORIDE [Suspect]
     Active Substance: RADIUM RA-223 DICHLORIDE
     Indication: PROSTATE CANCER STAGE IV
     Dosage: DOSE: 50 KBQ/KG??10-AUG-2015, 10-SEP-2015, 08-OCT-2015, 05-NOV-2015
     Route: 042
     Dates: start: 20150713, end: 20151203
  7. AMLODIPINE BESILATE [Concomitant]
     Active Substance: AMLODIPINE BESYLATE
     Indication: HYPERTENSION
     Route: 048
     Dates: start: 2007
  8. PREGABALIN. [Concomitant]
     Active Substance: PREGABALIN
     Indication: BACK PAIN
     Route: 048
     Dates: start: 20160120
  9. TAPENTADOL HYDROCHLORIDE [Concomitant]
     Active Substance: TAPENTADOL HYDROCHLORIDE
     Indication: BACK PAIN
     Route: 048
     Dates: start: 20160120
  10. SILODOSIN [Concomitant]
     Active Substance: SILODOSIN
     Indication: URINARY TRACT OBSTRUCTION
     Route: 048
     Dates: start: 20140508
  11. EDOXABAN [Concomitant]
     Active Substance: EDOXABAN TOSYLATE
     Indication: THROMBOSIS PROPHYLAXIS
     Route: 048
     Dates: start: 20151205
  12. QUETIAPINE FUMARATE. [Concomitant]
     Active Substance: QUETIAPINE FUMARATE
     Indication: RESTLESSNESS
     Route: 048
     Dates: start: 20160314
  13. SODIUM PICOSULFATE [Concomitant]
     Active Substance: SODIUM PICOSULFATE
     Indication: CONSTIPATION
     Route: 048
     Dates: start: 20160107
  14. QUETIAPINE FUMARATE. [Concomitant]
     Active Substance: QUETIAPINE FUMARATE
     Indication: RESTLESSNESS
     Route: 048
     Dates: start: 20160312, end: 20160313
  15. PREGABALIN. [Concomitant]
     Active Substance: PREGABALIN
     Indication: BACK PAIN
     Route: 048
     Dates: start: 20151208
  16. RADIUM RA 223 DICHLORIDE [Suspect]
     Active Substance: RADIUM RA-223 DICHLORIDE
     Indication: METASTASES TO BONE
     Dosage: DOSE: 50 KBQ/KG??10-AUG-2015, 10-SEP-2015, 08-OCT-2015, 05-NOV-2015
     Route: 042
     Dates: start: 20150713, end: 20151203
  17. LOXOPROFEN SODIUM [Concomitant]
     Active Substance: LOXOPROFEN SODIUM
     Indication: OSTEOARTHRITIS
     Route: 048
  18. VOLTAREN [Concomitant]
     Active Substance: DICLOFENAC SODIUM
     Route: 065
  19. LYRICA [Concomitant]
     Active Substance: PREGABALIN
     Route: 065
  20. SENNA [Concomitant]
     Active Substance: SENNA LEAF\SENNOSIDES\SENNOSIDES A AND B
     Indication: CONSTIPATION
     Route: 048
     Dates: start: 20151229, end: 2016
  21. PREDNISOLONE. [Suspect]
     Active Substance: PREDNISOLONE
     Indication: HORMONE-REFRACTORY PROSTATE CANCER
     Route: 048
     Dates: start: 20150713, end: 20161229
  22. PREDNISOLONE. [Suspect]
     Active Substance: PREDNISOLONE
     Indication: METASTASES TO BONE
     Route: 048
     Dates: start: 20150713, end: 20161229
  23. DEGARELIX [Concomitant]
     Active Substance: DEGARELIX
     Indication: NEOPLASM MALIGNANT
     Route: 058
     Dates: start: 20140825

REACTIONS (2)
  - Spinal compression fracture [Recovering/Resolving]
  - Encephalitis fungal [Fatal]

NARRATIVE: CASE EVENT DATE: 20160222
